FAERS Safety Report 10754070 (Version 1)
Quarter: 2015Q1

REPORT INFORMATION
  Report Type: Spontaneous
  Country: US (occurrence: US)
  Receive Date: 20150202
  Receipt Date: 20150202
  Transmission Date: 20150721
  Serious: No
  Sender: FDA-Public Use
  Company Number: US-ASTRAZENECA-2015SE07605

PATIENT
  Age: 775 Month
  Sex: Male
  Weight: 97.5 kg

DRUGS (4)
  1. ATENOLOL. [Suspect]
     Active Substance: ATENOLOL
     Indication: CARDIAC OPERATION
     Route: 048
     Dates: start: 1999
  2. MULTI VITAMIN [Concomitant]
     Active Substance: VITAMINS
     Indication: ADVERSE EVENT
     Route: 048
     Dates: start: 2014
  3. ATENOLOL. [Suspect]
     Active Substance: ATENOLOL
     Indication: VASCULAR GRAFT
     Route: 048
     Dates: start: 1999
  4. TOPROL XL [Suspect]
     Active Substance: METOPROLOL SUCCINATE
     Indication: HYPERTENSION
     Route: 048
     Dates: start: 201410

REACTIONS (2)
  - Off label use [Not Recovered/Not Resolved]
  - Diabetes mellitus [Unknown]

NARRATIVE: CASE EVENT DATE: 201410
